FAERS Safety Report 14261849 (Version 1)
Quarter: 2017Q4

REPORT INFORMATION
  Report Type: Spontaneous
  Country: BE (occurrence: BE)
  Receive Date: 20171208
  Receipt Date: 20171208
  Transmission Date: 20180321
  Serious: Yes (Hospitalization, Other)
  Sender: FDA-Public Use
  Company Number: BE-APOTEX-2017AP022641

PATIENT
  Age: 62 Year
  Sex: Male

DRUGS (7)
  1. RASAGILINE. [Suspect]
     Active Substance: RASAGILINE
     Indication: PARKINSON^S DISEASE
     Dosage: UNK
     Route: 065
     Dates: start: 2008
  2. LEVODOPA [Concomitant]
     Active Substance: LEVODOPA
     Indication: PARKINSON^S DISEASE
     Dosage: 600 MG, DAILY
     Route: 065
  3. PRAMIPEXOL APOTEX TABLETTEN [Suspect]
     Active Substance: PRAMIPEXOLE
     Indication: PARKINSON^S DISEASE
     Dosage: 0.7 MG, TID
     Route: 065
  4. RASAGILINE. [Suspect]
     Active Substance: RASAGILINE
     Dosage: 1 MG, DAILY
     Route: 065
  5. LEVODOPA [Concomitant]
     Active Substance: LEVODOPA
     Dosage: 100 MG, SIX TIMES DAILY
     Route: 065
  6. ENTACAPONE. [Concomitant]
     Active Substance: ENTACAPONE
     Indication: PARKINSON^S DISEASE
     Route: 065
  7. PRAMIPEXOL APOTEX TABLETTEN [Suspect]
     Active Substance: PRAMIPEXOLE
     Dosage: 0.35 MG, TID
     Route: 065

REACTIONS (6)
  - Cardiac failure [Recovered/Resolved]
  - Bradycardia [None]
  - Mitral valve incompetence [None]
  - Inferior vena cava dilatation [None]
  - Dilatation atrial [None]
  - Shock [None]
